FAERS Safety Report 15428315 (Version 2)
Quarter: 2018Q4

REPORT INFORMATION
  Report Type: Spontaneous
  Country: US (occurrence: US)
  Receive Date: 20180926
  Receipt Date: 20181010
  Transmission Date: 20190204
  Serious: Yes (Hospitalization)
  Sender: FDA-Public Use
  Company Number: US-ACCORD-072761

PATIENT
  Age: 52 Year
  Sex: Male

DRUGS (1)
  1. HYDROCHLOROTHIAZIDE. [Suspect]
     Active Substance: HYDROCHLOROTHIAZIDE
     Indication: HYPERTENSION
     Dosage: STRENGTH: 12.5 MG
     Route: 048

REACTIONS (4)
  - Blood potassium decreased [Recovered/Resolved]
  - Chest pain [Recovered/Resolved]
  - Loss of consciousness [Recovered/Resolved]
  - Blood pressure decreased [Recovered/Resolved]
